APPROVED DRUG PRODUCT: CARMOL HC
Active Ingredient: HYDROCORTISONE ACETATE
Strength: 1%
Dosage Form/Route: CREAM;TOPICAL
Application: A080505 | Product #001
Applicant: FOUGERA PHARMACEUTICALS INC
Approved: Approved Prior to Jan 1, 1982 | RLD: Yes | RS: No | Type: DISCN